FAERS Safety Report 9448484 (Version 1)
Quarter: 2013Q3

REPORT INFORMATION
  Report Type: Spontaneous
  Country: FR (occurrence: FR)
  Receive Date: 20130808
  Receipt Date: 20130808
  Transmission Date: 20140515
  Serious: Yes (Hospitalization)
  Sender: FDA-Public Use
  Company Number: FR-SANOFI-AVENTIS-2013SA075521

PATIENT
  Age: 83 Year
  Sex: Female

DRUGS (7)
  1. COAPROVEL [Suspect]
     Indication: PRODUCT USED FOR UNKNOWN INDICATION
     Route: 048
  2. LASILIX [Suspect]
     Indication: PRODUCT USED FOR UNKNOWN INDICATION
     Route: 048
  3. VISIPAQUE [Suspect]
     Indication: ARTERIOGRAM CORONARY
     Route: 042
     Dates: start: 20130517, end: 20130517
  4. LEVOTHYROX [Concomitant]
  5. SOTALEX [Concomitant]
  6. INSULIN [Concomitant]
  7. PLAVIX [Concomitant]

REACTIONS (2)
  - Cardiac failure [Unknown]
  - Renal failure acute [Unknown]
